FAERS Safety Report 16444577 (Version 1)
Quarter: 2019Q2

REPORT INFORMATION
  Report Type: Spontaneous
  Country: US (occurrence: US)
  Receive Date: 20190618
  Receipt Date: 20190618
  Transmission Date: 20190711
  Serious: Yes (Other)
  Sender: FDA-Public Use
  Company Number: PHEH2019US024957

PATIENT
  Sex: Female

DRUGS (2)
  1. NYSTATIN. [Suspect]
     Active Substance: NYSTATIN
     Indication: INFECTION
     Dosage: UNK
     Route: 065
  2. ESTRADIOL. [Suspect]
     Active Substance: ESTRADIOL
     Indication: PRODUCT USED FOR UNKNOWN INDICATION
     Dosage: UNK
     Route: 067

REACTIONS (3)
  - Vulvovaginal burning sensation [Unknown]
  - Infection [Unknown]
  - Vulvovaginal pruritus [Unknown]
